FAERS Safety Report 8782182 (Version 2)
Quarter: 2012Q4

REPORT INFORMATION
  Report Type: 
  Country: DE (occurrence: DE)
  Receive Date: 20120913
  Receipt Date: 20121102
  Transmission Date: 20130627
  Serious: Yes (Other)
  Sender: FDA-Public Use
  Company Number: DE-ELI_LILLY_AND_COMPANY-DE201209001184

PATIENT
  Age: 66 Year
  Sex: Male
  Weight: 93 kg

DRUGS (5)
  1. BYETTA [Suspect]
     Indication: TYPE 2 DIABETES MELLITUS
     Dosage: 10 ug, bid
     Route: 058
     Dates: start: 20120120, end: 20120713
  2. METFORMIN [Concomitant]
     Dosage: 1000 mg, bid
  3. METFORMIN [Concomitant]
     Dosage: 500 mg, qd
  4. LANTUS [Concomitant]
     Dosage: 24 u, each evening
  5. SORTIS [Concomitant]
     Dosage: 10 mg, UNK

REACTIONS (3)
  - Pancreatitis chronic [Not Recovered/Not Resolved]
  - Glycosylated haemoglobin increased [Unknown]
  - Weight decreased [Unknown]
